FAERS Safety Report 18456991 (Version 1)
Quarter: 2020Q4

REPORT INFORMATION
  Report Type: Spontaneous
  Country: BR (occurrence: BR)
  Receive Date: 20201103
  Receipt Date: 20201103
  Transmission Date: 20210114
  Serious: No
  Sender: FDA-Public Use
  Company Number: BR-JNJFOC-20201026878

PATIENT
  Age: 6 Decade
  Sex: Female
  Weight: 80 kg

DRUGS (3)
  1. INVEGA SUSTENNA [Suspect]
     Active Substance: PALIPERIDONE PALMITATE
  2. INVEGA SUSTENNA [Suspect]
     Active Substance: PALIPERIDONE PALMITATE
     Indication: PRODUCT USED FOR UNKNOWN INDICATION
     Dosage: DATE OF THE LAST DOSE: 05-OCT-2020
     Route: 030
     Dates: start: 2017
  3. INVEGA SUSTENNA [Suspect]
     Active Substance: PALIPERIDONE PALMITATE

REACTIONS (6)
  - Weight increased [Not Recovered/Not Resolved]
  - Nightmare [Not Recovered/Not Resolved]
  - Product packaging quantity issue [Unknown]
  - Wrong technique in product usage process [Unknown]
  - Urinary incontinence [Not Recovered/Not Resolved]
  - Peau d^orange [Not Recovered/Not Resolved]
